FAERS Safety Report 7774311-6 (Version None)
Quarter: 2011Q3

REPORT INFORMATION
  Report Type: 
  Country: None (occurrence: None)
  Receive Date: 20110921
  Receipt Date: 20110606
  Transmission Date: 20111222
  Serious: Yes (Hospitalization)
  Sender: FDA-Public Use
  Company Number: UTC-007690

PATIENT
  Age: 69 Year
  Sex: Female

DRUGS (4)
  1. DIURETICS (DIURETICS) [Concomitant]
  2. ADCIRCA [Concomitant]
  3. TRACLEER [Concomitant]
  4. TYVASO [Suspect]
     Indication: COR PULMONALE CHRONIC
     Dosage: 18-54 MICROGRAMS (4 IN 1 D), INHALATION
     Route: 055
     Dates: start: 20101216

REACTIONS (2)
  - CARDIAC DISORDER [None]
  - PULMONARY HYPERTENSION [None]
